FAERS Safety Report 15980649 (Version 2)
Quarter: 2019Q1

REPORT INFORMATION
  Report Type: Spontaneous
  Country: US (occurrence: US)
  Receive Date: 20190219
  Receipt Date: 20190220
  Transmission Date: 20190418
  Serious: Yes (Other)
  Sender: FDA-Public Use
  Company Number: US-ALLERGAN-1906706US

PATIENT
  Age: 59 Year
  Sex: Male

DRUGS (2)
  1. MESALAZINE UNK [Suspect]
     Active Substance: MESALAMINE
     Indication: CROHN^S DISEASE
     Dosage: UNK
     Route: 054
     Dates: end: 201604
  2. MESALAZINE UNK [Suspect]
     Active Substance: MESALAMINE
     Dosage: UNK
     Route: 048
     Dates: start: 1999

REACTIONS (3)
  - Crohn^s disease [Recovering/Resolving]
  - Metastatic malignant melanoma [Unknown]
  - Desmoplastic melanoma [Recovered/Resolved]

NARRATIVE: CASE EVENT DATE: 201603
